FAERS Safety Report 7432381-9 (Version None)
Quarter: 2011Q2

REPORT INFORMATION
  Report Type: 
  Country: None (occurrence: None)
  Receive Date: 20110422
  Receipt Date: 20110411
  Transmission Date: 20111010
  Serious: Yes (Hospitalization)
  Sender: FDA-Public Use
  Company Number: CA-JNJFOC-20110202898

PATIENT
  Age: 64 Year
  Sex: Female
  Weight: 128 kg

DRUGS (1)
  1. SIMPONI [Suspect]
     Indication: RHEUMATOID ARTHRITIS
     Route: 058

REACTIONS (2)
  - PULMONARY OEDEMA [None]
  - CHRONIC OBSTRUCTIVE PULMONARY DISEASE [None]
